FAERS Safety Report 7980243-0 (Version None)
Quarter: 2011Q4

REPORT INFORMATION
  Report Type: 
  Country: None (occurrence: None)
  Receive Date: 20111212
  Receipt Date: 20111201
  Transmission Date: 20120403
  Serious: Yes (Other)
  Sender: FDA-Public Use
  Company Number: AUR-APL-2011-06072

PATIENT
  Age: 69 Year
  Sex: Female
  Weight: 68.3 kg

DRUGS (13)
  1. VENLAFAXINE [Suspect]
     Indication: RADICULITIS
     Dosage: (2 DOSAGE FORMS),ORAL
     Dates: start: 20111122
  2. VENLAFAXINE [Suspect]
     Indication: PAIN
     Dosage: (2 DOSAGE FORMS),ORAL
     Dates: start: 20111122
  3. LYRICA [Concomitant]
  4. OMEPRAZOLE [Concomitant]
  5. METFORMIN HCL [Concomitant]
  6. LEVOTHYROXINE SODIUM [Concomitant]
  7. METOPROLOL TARTRATE [Concomitant]
  8. GLIPIZIDE [Concomitant]
  9. ENALAPRIL MALEATE [Concomitant]
  10. GEMFIBROZIL [Concomitant]
  11. EFFEXOR XR [Suspect]
     Indication: RADICULITIS
     Dosage: 300 MG (150 MG,2 IN 1 D) ORAL
     Dates: end: 20111122
  12. EFFEXOR XR [Suspect]
     Indication: PAIN
     Dosage: 300 MG (150 MG,2 IN 1 D) ORAL
     Dates: end: 20111122
  13. TRAZODONE HCL [Concomitant]

REACTIONS (2)
  - PAIN [None]
  - DRUG INEFFECTIVE [None]
